FAERS Safety Report 15369494 (Version 3)
Quarter: 2019Q3

REPORT INFORMATION
  Report Type: Spontaneous
  Country: US (occurrence: US)
  Receive Date: 20180911
  Receipt Date: 20190715
  Transmission Date: 20191004
  Serious: Yes (Hospitalization, Other)
  Sender: FDA-Public Use
  Company Number: US-PFIZER INC-2018362363

PATIENT
  Age: 49 Year
  Sex: Male
  Weight: 127 kg

DRUGS (11)
  1. LASIX [Concomitant]
     Active Substance: FUROSEMIDE
     Indication: ALCOHOLIC LIVER DISEASE
     Dosage: 20 MG, 2X/DAY
     Route: 048
     Dates: start: 20140115, end: 20140225
  2. PROVENTIL HFA [Concomitant]
     Active Substance: ALBUTEROL SULFATE
     Indication: WHEEZING
     Dosage: UNK UNK, AS NEEDED (2 PUFFS BY MOUTH 4 TIMES DAILY AS NEEDED)
     Route: 045
     Dates: start: 20140115
  3. ALDACTONE [Suspect]
     Active Substance: SPIRONOLACTONE
     Dosage: 100 MG, 2X/DAY
     Route: 048
     Dates: start: 20140225, end: 20150729
  4. SPIRONOLACTONE. [Suspect]
     Active Substance: SPIRONOLACTONE
     Indication: FLUID RETENTION
  5. HYDRODIURIL [Concomitant]
     Active Substance: HYDROCHLOROTHIAZIDE
     Dosage: 25 MG, DAILY
     Route: 048
     Dates: start: 20130905, end: 20140402
  6. VENTOLIN HFA [Concomitant]
     Active Substance: ALBUTEROL SULFATE
     Indication: WHEEZING
     Dosage: UNK UNK, AS NEEDED (2 PUFFS BY MOUTH 4 TIMES DAILY AS NEEDED)
     Route: 045
     Dates: start: 20140115
  7. SPIRONOLACTONE. [Suspect]
     Active Substance: SPIRONOLACTONE
     Indication: DIURETIC THERAPY
     Dosage: 100 MG, 2X/DAY
     Route: 048
     Dates: start: 20140115, end: 2016
  8. KENALOG [Concomitant]
     Active Substance: TRIAMCINOLONE ACETONIDE
     Dosage: UNK UNK, 2X/DAY
     Route: 061
     Dates: start: 20140115
  9. PROAIR HFA [Concomitant]
     Active Substance: ALBUTEROL SULFATE
     Indication: WHEEZING
     Dosage: UNK UNK, AS NEEDED (2 PUFFS BY MOUTH 4 TIMES DAILY AS NEEDED)
     Route: 045
     Dates: start: 20140115
  10. SPIRONOLACTONE. [Suspect]
     Active Substance: SPIRONOLACTONE
     Indication: PERIPHERAL SWELLING
  11. LASIX [Concomitant]
     Active Substance: FUROSEMIDE
     Dosage: 40 MG, 2X/DAY (2 TABLETS 2 TIMES DAILY)
     Route: 048
     Dates: start: 20140225, end: 20141201

REACTIONS (9)
  - Libido decreased [Unknown]
  - Gynaecomastia [Not Recovered/Not Resolved]
  - Blood oestrogen increased [Recovered/Resolved]
  - Ejaculation disorder [Unknown]
  - Arterial insufficiency [Not Recovered/Not Resolved]
  - Erectile dysfunction [Not Recovered/Not Resolved]
  - Asthenia [Unknown]
  - Hypogonadism male [Not Recovered/Not Resolved]
  - Blood testosterone decreased [Recovered/Resolved]

NARRATIVE: CASE EVENT DATE: 201501
